FAERS Safety Report 4480906-8 (Version None)
Quarter: 2004Q4

REPORT INFORMATION
  Report Type: 
  Country: None (occurrence: None)
  Receive Date: 20041019
  Receipt Date: 20041014
  Transmission Date: 20050328
  Serious: Yes (Hospitalization, Other)
  Sender: FDA-Public Use
  Company Number: KII-2001-0013584

PATIENT
  Sex: Male

DRUGS (2)
  1. OXYCONTIN [Suspect]
     Indication: PAIN
     Dosage: PARENTERAL
     Route: 051
  2. ANTIBIOTICS [Concomitant]

REACTIONS (3)
  - DRUG ABUSER [None]
  - ENDOCARDITIS [None]
  - SEPSIS [None]
